FAERS Safety Report 12860280 (Version 6)
Quarter: 2020Q4

REPORT INFORMATION
  Report Type: Report from Study
  Country: DE (occurrence: JP)
  Receive Date: 20161019
  Receipt Date: 20201118
  Transmission Date: 20210113
  Serious: Yes (Death, Other)
  Sender: FDA-Public Use
  Company Number: JP-ELI_LILLY_AND_COMPANY-JP201610005686

PATIENT
  Age: 80 Year
  Sex: Male

DRUGS (6)
  1. CETUXIMAB. [Suspect]
     Active Substance: CETUXIMAB
     Dosage: UNK, UNKNOWN
     Route: 042
     Dates: start: 20160829
  2. CETUXIMAB. [Suspect]
     Active Substance: CETUXIMAB
     Dosage: UNK, UNKNOWN
     Route: 042
     Dates: start: 20160822
  3. CETUXIMAB. [Suspect]
     Active Substance: CETUXIMAB
     Dosage: UNK, UNKNOWN
     Route: 042
     Dates: start: 20160905
  4. CETUXIMAB. [Suspect]
     Active Substance: CETUXIMAB
     Dosage: UNK, UNKNOWN
     Route: 042
     Dates: start: 20160815
  5. CETUXIMAB. [Suspect]
     Active Substance: CETUXIMAB
     Indication: HEAD AND NECK CANCER
     Dosage: 640 MG, UNKNOWN
     Route: 042
     Dates: start: 20160802
  6. CETUXIMAB. [Suspect]
     Active Substance: CETUXIMAB
     Dosage: UNK, UNKNOWN
     Route: 042
     Dates: start: 20160808

REACTIONS (14)
  - Anaemia [Not Recovered/Not Resolved]
  - Aspartate aminotransferase increased [Not Recovered/Not Resolved]
  - Hyperkalaemia [Recovering/Resolving]
  - Interstitial lung disease [Fatal]
  - Alanine aminotransferase increased [Not Recovered/Not Resolved]
  - Dermatitis acneiform [Recovering/Resolving]
  - Blood creatinine increased [Not Recovered/Not Resolved]
  - Decreased appetite [Not Recovered/Not Resolved]
  - Hypomagnesaemia [Recovering/Resolving]
  - Radiation skin injury [Not Recovered/Not Resolved]
  - Hyponatraemia [Recovering/Resolving]
  - Platelet count decreased [Recovering/Resolving]
  - Pharyngeal inflammation [Not Recovered/Not Resolved]
  - Paronychia [Recovering/Resolving]

NARRATIVE: CASE EVENT DATE: 20160803
